FAERS Safety Report 16347399 (Version 1)
Quarter: 2019Q2

REPORT INFORMATION
  Report Type: Spontaneous
  Country: IT (occurrence: IT)
  Receive Date: 20190523
  Receipt Date: 20190523
  Transmission Date: 20190711
  Serious: Yes (Hospitalization)
  Sender: FDA-Public Use
  Company Number: IT-SA-2019SA140299

PATIENT
  Age: 92 Year
  Sex: Female

DRUGS (5)
  1. STILNOX [Concomitant]
     Active Substance: ZOLPIDEM TARTRATE
     Route: 048
  2. RIFADIN [Suspect]
     Active Substance: RIFAMPIN
     Indication: LOCALISED INFECTION
     Route: 048
     Dates: start: 20190331, end: 20190409
  3. OMEPRAZOLE. [Concomitant]
     Active Substance: OMEPRAZOLE
     Route: 048
  4. MEDROL [METHYLPREDNISOLONE ACETATE] [Concomitant]
     Active Substance: METHYLPREDNISOLONE ACETATE
     Route: 048
  5. NALAPRES [Concomitant]
     Route: 048

REACTIONS (6)
  - Faeces discoloured [Unknown]
  - Decreased appetite [Unknown]
  - Asthenia [Unknown]
  - Rash generalised [Unknown]
  - Haemoptysis [Unknown]
  - Nausea [Unknown]

NARRATIVE: CASE EVENT DATE: 20190401
